FAERS Safety Report 5194382-3 (Version None)
Quarter: 2006Q4

REPORT INFORMATION
  Report Type: 
  Country: None (occurrence: None)
  Receive Date: 20061228
  Receipt Date: 20061219
  Transmission Date: 20070319
  Serious: Yes (Other)
  Sender: FDA-Public Use
  Company Number: BG-PFIZER INC-2006154786

PATIENT
  Age: 20 Year
  Sex: Male

DRUGS (4)
  1. IRINOTECAN HYDROCHLORIDE SOLUTION, STERILE [Suspect]
     Indication: COLORECTAL CANCER METASTATIC
  2. FLUOROURACIL [Suspect]
     Indication: COLORECTAL CANCER METASTATIC
  3. CALCIUM FOLINATE [Suspect]
     Indication: COLORECTAL CANCER METASTATIC
  4. BEVACIZUMAB [Suspect]
     Indication: COLORECTAL CANCER METASTATIC
     Dosage: DAILY DOSE:5MG/KG

REACTIONS (2)
  - HYPERTRIGLYCERIDAEMIA [None]
  - PERITONITIS BACTERIAL [None]
